FAERS Safety Report 5626511-9 (Version None)
Quarter: 2008Q1

REPORT INFORMATION
  Report Type: 
  Country: None (occurrence: None)
  Receive Date: 20080214
  Receipt Date: 20080207
  Transmission Date: 20080703
  Serious: Yes (Other)
  Sender: FDA-Public Use
  Company Number: JP-ASTRAZENECA-2008AP00892

PATIENT
  Age: 61 Year
  Sex: Male

DRUGS (3)
  1. IRESSA [Suspect]
     Indication: LUNG NEOPLASM MALIGNANT
     Route: 048
     Dates: start: 20060801, end: 20071201
  2. UNKNOWNDRUG [Concomitant]
     Dosage: DOSE UNKNOWN
     Route: 065
  3. UNKNOWNDRUG [Concomitant]
     Dosage: DOSE UNKNOWN
     Route: 065

REACTIONS (1)
  - DEPRESSED LEVEL OF CONSCIOUSNESS [None]
